FAERS Safety Report 8357238-0 (Version None)
Quarter: 2012Q2

REPORT INFORMATION
  Report Type: 
  Country: None (occurrence: None)
  Receive Date: 20120510
  Receipt Date: 20120502
  Transmission Date: 20120825
  Serious: Yes (Other)
  Sender: FDA-Public Use
  Company Number: DSA_56407_2012

PATIENT
  Sex: Female

DRUGS (2)
  1. XENAZINE [Suspect]
     Indication: HUNTINGTON'S DISEASE
     Dosage: (12.5 MG BID ORAL), (12.5 MG BID ORAL)
     Route: 048
     Dates: end: 20120101
  2. XENAZINE [Suspect]
     Indication: HUNTINGTON'S DISEASE
     Dosage: (12.5 MG BID ORAL), (12.5 MG BID ORAL)
     Route: 048
     Dates: end: 20120101

REACTIONS (4)
  - INSOMNIA [None]
  - MUSCULOSKELETAL STIFFNESS [None]
  - MIGRAINE [None]
  - FATIGUE [None]
